FAERS Safety Report 8693110 (Version 7)
Quarter: 2015Q2

REPORT INFORMATION
  Report Type: Spontaneous
  Country: US (occurrence: US)
  Receive Date: 20120730
  Receipt Date: 20150627
  Transmission Date: 20150821
  Serious: Yes (Hospitalization, Disabling, Other)
  Sender: FDA-Public Use
  Company Number: US-MSD-1207USA007169

PATIENT
  Sex: Female

DRUGS (5)
  1. FOSAMAX [Suspect]
     Active Substance: ALENDRONATE SODIUM
     Indication: OSTEOPENIA
     Dosage: 10 MG, QD
     Route: 048
     Dates: start: 1998
  2. FOSAMAX PLUS D [Suspect]
     Active Substance: ALENDRONATE SODIUM\CHOLECALCIFEROL
     Indication: OSTEOPOROSIS
     Dosage: 70 MG/2800 IU, QW
     Dates: start: 20080609
  3. FOSAMAX PLUS D [Suspect]
     Active Substance: ALENDRONATE SODIUM\CHOLECALCIFEROL
     Indication: OSTEOPENIA
  4. FOSAMAX [Suspect]
     Active Substance: ALENDRONATE SODIUM
     Dosage: 70 MG, UNK
     Route: 048
     Dates: end: 201005
  5. ALENDRONATE SODIUM. [Suspect]
     Active Substance: ALENDRONATE SODIUM
     Indication: PRODUCT USED FOR UNKNOWN INDICATION
     Dosage: 70 MG, UNK
     Route: 048
     Dates: start: 20081205

REACTIONS (25)
  - Rhinorrhoea [Unknown]
  - Hypertension [Unknown]
  - Tonsillectomy [Unknown]
  - Anaemia [Unknown]
  - Femur fracture [Unknown]
  - Fall [Unknown]
  - Nuclear magnetic resonance imaging abnormal [Unknown]
  - Osteoarthritis [Unknown]
  - Hysterectomy [Unknown]
  - Intramedullary rod insertion [Unknown]
  - Urticaria [Unknown]
  - Otitis media chronic [Unknown]
  - Arthralgia [Unknown]
  - Tooth extraction [Unknown]
  - Pain in extremity [Unknown]
  - Vulvovaginal candidiasis [Unknown]
  - Sinusitis [Unknown]
  - Atrioventricular block first degree [Unknown]
  - Femoral neck fracture [Unknown]
  - Fall [Unknown]
  - Osteoarthritis [Unknown]
  - Gastrooesophageal reflux disease [Unknown]
  - Femur fracture [Unknown]
  - Cataract operation [Unknown]
  - Chronic obstructive pulmonary disease [Unknown]

NARRATIVE: CASE EVENT DATE: 19980501
